FAERS Safety Report 8902951 (Version 2)
Quarter: 2012Q4

REPORT INFORMATION
  Report Type: 
  Country: GB (occurrence: GB)
  Receive Date: 20121113
  Receipt Date: 20121116
  Transmission Date: 20130627
  Serious: Yes (Death)
  Sender: FDA-Public Use
  Company Number: GB-CELGENEUS-167-50794-12111068

PATIENT
  Age: 76 Year
  Sex: Female

DRUGS (4)
  1. VIDAZA [Suspect]
     Indication: MDS
     Route: 065
  2. VIDAZA [Suspect]
     Route: 065
     Dates: end: 20121101
  3. ADCAL [Concomitant]
     Indication: DRUG USE FOR UNKNOWN INDICATION
     Route: 065
  4. RISEDRONATE [Concomitant]
     Indication: DRUG USE FOR UNKNOWN INDICATION
     Route: 065

REACTIONS (1)
  - Myelofibrosis [Fatal]
